FAERS Safety Report 9282265 (Version 1)
Quarter: 2013Q2

REPORT INFORMATION
  Report Type: Spontaneous
  Country: US (occurrence: US)
  Receive Date: 20130510
  Receipt Date: 20130510
  Transmission Date: 20140414
  Serious: No
  Sender: FDA-Public Use
  Company Number: US-PFIZER INC-2013144115

PATIENT
  Age: 47 Year
  Sex: Male
  Weight: 102.4 kg

DRUGS (5)
  1. GABAPENTIN [Suspect]
     Indication: NERVE INJURY
     Dosage: 300 MG, 2X/DAY
     Route: 048
  2. NOVOLOG [Concomitant]
     Dosage: UNK
  3. LANTUS [Concomitant]
     Dosage: UNK
  4. OMEPRAZOLE [Concomitant]
     Dosage: UNK
  5. VITAMIN B12 [Concomitant]
     Dosage: UNK

REACTIONS (3)
  - Burning sensation [Unknown]
  - Pain in extremity [Unknown]
  - Off label use [Not Recovered/Not Resolved]
